FAERS Safety Report 19223873 (Version 1)
Quarter: 2021Q2

REPORT INFORMATION
  Report Type: Spontaneous
  Country: RU (occurrence: RU)
  Receive Date: 20210506
  Receipt Date: 20210506
  Transmission Date: 20210717
  Serious: Yes (Other)
  Sender: FDA-Public Use
  Company Number: RU-ROCHE-2821832

PATIENT
  Age: 39 Year
  Sex: Male

DRUGS (1)
  1. ZELBORAF [Suspect]
     Active Substance: VEMURAFENIB
     Indication: PRODUCT USED FOR UNKNOWN INDICATION
     Route: 065

REACTIONS (7)
  - Pulmonary artery thrombosis [Unknown]
  - Lymphadenopathy [Unknown]
  - Hepatic steatosis [Unknown]
  - Metastases to lung [Unknown]
  - Asthenia [Unknown]
  - Pneumonitis [Unknown]
  - Nephrolithiasis [Unknown]
